FAERS Safety Report 19850605 (Version 7)
Quarter: 2024Q1

REPORT INFORMATION
  Report Type: Spontaneous
  Country: US (occurrence: US)
  Receive Date: 20210917
  Receipt Date: 20240327
  Transmission Date: 20240409
  Serious: Yes (Disabling, Other)
  Sender: FDA-Public Use
  Company Number: US-REGENERON PHARMACEUTICALS, INC.-2021-85415

PATIENT
  Sex: Female

DRUGS (2)
  1. EYLEA [Suspect]
     Active Substance: AFLIBERCEPT
     Indication: Retinal vein occlusion
     Dosage: 2 MG, Q8W, RIGHT EYE (FORMULATION: UNKNOWN, STRENGTH: 40MG/ML; 2MG/0.05ML )
     Dates: start: 20150708, end: 20210531
  2. OZURDEX [Concomitant]
     Active Substance: DEXAMETHASONE
     Indication: Product used for unknown indication
     Dosage: UNK;ON ALTERNATING 8 WEEK SCHEDULE
     Dates: start: 20180321, end: 202311

REACTIONS (5)
  - Blindness unilateral [Not Recovered/Not Resolved]
  - Eye disorder [Recovered/Resolved]
  - Eye infection staphylococcal [Recovered/Resolved]
  - Visual impairment [Recovered/Resolved]
  - Weight increased [Unknown]

NARRATIVE: CASE EVENT DATE: 20210501
